FAERS Safety Report 6223757-6 (Version None)
Quarter: 2009Q2

REPORT INFORMATION
  Report Type: 
  Country: None (occurrence: None)
  Receive Date: 20090611
  Receipt Date: 20090506
  Transmission Date: 20091009
  Serious: No
  Sender: FDA-Public Use
  Company Number: US-ABBOTT-09P-155-0571819-00

PATIENT
  Sex: Male
  Weight: 63.56 kg

DRUGS (2)
  1. HUMIRA [Suspect]
     Indication: ANKYLOSING SPONDYLITIS
     Route: 058
     Dates: start: 20081227, end: 20090215
  2. HUMIRA [Suspect]
     Route: 058
     Dates: start: 20090426

REACTIONS (3)
  - ANKYLOSING SPONDYLITIS [None]
  - BREAKTHROUGH PAIN [None]
  - DRUG INEFFECTIVE [None]
